FAERS Safety Report 7606315-8 (Version None)
Quarter: 2011Q3

REPORT INFORMATION
  Report Type: 
  Country: None (occurrence: None)
  Receive Date: 20110713
  Receipt Date: 20110627
  Transmission Date: 20111222
  Serious: No
  Sender: FDA-Public Use
  Company Number: US-B.I. PHARMACEUTICALS,INC./RIDGEFIELD-2011-BP-06281BP

PATIENT
  Sex: Female

DRUGS (15)
  1. LOTENSIN [Concomitant]
     Indication: ANGINA PECTORIS
  2. METFORMIN HCL [Concomitant]
     Dosage: 1500 MG
  3. XANAX [Concomitant]
     Indication: SLEEP DISORDER
  4. FUROSEMIDE [Concomitant]
     Indication: ANGINA PECTORIS
     Dosage: 40 MG
     Dates: start: 20000101
  5. POTASSIUM [Concomitant]
     Indication: BLOOD POTASSIUM DECREASED
     Dosage: 20 MEQ
     Dates: start: 20000101
  6. TIMOPTIC [Concomitant]
     Indication: GLAUCOMA
     Dosage: 5 ML
     Dates: start: 19950101
  7. GLUCOPHAGE [Concomitant]
     Indication: TYPE 2 DIABETES MELLITUS
     Dates: start: 19990101
  8. TRUSOPT [Concomitant]
     Indication: GLAUCOMA
     Dosage: 10 ML
     Dates: start: 19950101
  9. XALATAN [Concomitant]
     Indication: GLAUCOMA
     Dates: start: 20000101
  10. GLUCOTROL [Concomitant]
     Indication: TYPE 2 DIABETES MELLITUS
     Dosage: 5 MG
     Dates: start: 19990101
  11. PRADAXA [Suspect]
     Indication: ATRIAL FIBRILLATION
     Dosage: 300 MG
     Route: 048
     Dates: start: 20110201
  12. LOTENSIN [Concomitant]
     Indication: TYPE 2 DIABETES MELLITUS
     Dosage: 10 MG
     Dates: start: 19990101
  13. SOTALOL HCL [Concomitant]
     Indication: ATRIAL FIBRILLATION
     Dosage: 320 MG
     Dates: start: 20010101
  14. AFEDITAB CR [Concomitant]
     Dosage: 30 MG
  15. ZOCOR [Concomitant]
     Dosage: 10 MG

REACTIONS (4)
  - EPISTAXIS [None]
  - HEADACHE [None]
  - ABDOMINAL DISCOMFORT [None]
  - PYREXIA [None]
